FAERS Safety Report 18784190 (Version 1)
Quarter: 2021Q1

REPORT INFORMATION
  Report Type: Spontaneous
  Country: US (occurrence: US)
  Receive Date: 20210125
  Receipt Date: 20210125
  Transmission Date: 20210419
  Serious: No
  Sender: FDA-Public Use
  Company Number: US-ABBVIE-20K-163-3686902-00

PATIENT
  Age: 26 Year
  Sex: Female

DRUGS (3)
  1. ORILISSA [Suspect]
     Active Substance: ELAGOLIX SODIUM
     Indication: PRODUCT USED FOR UNKNOWN INDICATION
     Route: 048
  2. ORTHO MICRONOR [Concomitant]
     Active Substance: NORETHINDRONE
     Indication: CONTRACEPTION
  3. ORTHO MICRONOR [Concomitant]
     Active Substance: NORETHINDRONE

REACTIONS (2)
  - Amenorrhoea [Unknown]
  - Maternal exposure during pregnancy [Unknown]
